FAERS Safety Report 4354941-4 (Version None)
Quarter: 2004Q2

REPORT INFORMATION
  Report Type: 
  Country: None (occurrence: None)
  Receive Date: 20040504
  Receipt Date: 20040419
  Transmission Date: 20050107
  Serious: Yes (Hospitalization)
  Sender: FDA-Public Use
  Company Number: 2004-DE-02213DE

PATIENT
  Sex: Male

DRUGS (2)
  1. CLONIDINE [Suspect]
     Dosage: 0.75 MG; PO (ONCE)
     Route: 048
  2. FUROSEMIDE [Suspect]
     Dosage: 400 MG (40 MG, 1 X 10 TABLETS); PO (ONCE)
     Route: 048

REACTIONS (4)
  - BRADYCARDIA [None]
  - HYPOTENSION [None]
  - INTENTIONAL MISUSE [None]
  - SUICIDE ATTEMPT [None]
